FAERS Safety Report 21139911 (Version 1)
Quarter: 2022Q3

REPORT INFORMATION
  Report Type: Spontaneous
  Country: DE (occurrence: DE)
  Receive Date: 20220728
  Receipt Date: 20220728
  Transmission Date: 20221027
  Serious: Yes (Other)
  Sender: FDA-Public Use
  Company Number: DE-EMBRYOTOX-202115226

PATIENT
  Age: 0 Year
  Sex: Female
  Weight: 2.814 kg

DRUGS (7)
  1. VENLAFAXINE [Suspect]
     Active Substance: VENLAFAXINE HYDROCHLORIDE
     Indication: Depression
     Dosage: 150 MILLIGRAM DAILY; 150 [MG/D ]
     Route: 065
  2. tavor [Concomitant]
     Indication: Agitation
     Dosage: 1 MILLIGRAM DAILY; 1 [MG/D ]
  3. JOD [Concomitant]
     Indication: Nutritional supplementation
     Dosage: 200 MICROGRAM DAILY; 200 [UG/D ]
  4. PREDNISOLONE [Concomitant]
     Active Substance: PREDNISOLONE
     Indication: Hypersensitivity
  5. CETIRIZINE [Concomitant]
     Active Substance: CETIRIZINE HYDROCHLORIDE
     Indication: Hypersensitivity
     Dosage: 10 MILLIGRAM DAILY; 10 [MG/D ]
  6. PANTOZOL [Concomitant]
     Active Substance: PANTOPRAZOLE SODIUM
     Indication: Gastritis prophylaxis
     Dosage: 40 MILLIGRAM DAILY; 40 [MG/D ]
  7. METHYLDOPA [Concomitant]
     Active Substance: METHYLDOPA
     Indication: Pre-eclampsia
     Dosage: 1000 MILLIGRAM DAILY; 1000 [MG/D (4X250) ]

REACTIONS (5)
  - Somnolence [Recovered/Resolved]
  - Foetal exposure during pregnancy [Unknown]
  - Exposure via breast milk [Unknown]
  - Hypotonia neonatal [Recovered/Resolved]
  - Selective eating disorder [Recovered/Resolved]
